FAERS Safety Report 20469079 (Version 1)
Quarter: 2022Q1

REPORT INFORMATION
  Report Type: Spontaneous
  Country: US (occurrence: None)
  Receive Date: 20220212
  Receipt Date: 20220212
  Transmission Date: 20220423
  Serious: Yes (Other)
  Sender: FDA-Public Use
  Company Number: None

PATIENT
  Age: 74 Year
  Sex: Male
  Weight: 81 kg

DRUGS (7)
  1. PROLIA [Suspect]
     Active Substance: DENOSUMAB
     Indication: Osteoporosis
     Dosage: OTHER FREQUENCY : EACH 6 MONTHS;?
     Route: 058
     Dates: start: 20211007
  2. TAMSULOSIN [Concomitant]
     Active Substance: TAMSULOSIN
  3. CHLORTHALIDONE [Concomitant]
     Active Substance: CHLORTHALIDONE
  4. CALCIUM CARBONATE [Concomitant]
     Active Substance: CALCIUM CARBONATE
  5. VITAMIN D3 [Concomitant]
     Active Substance: CHOLECALCIFEROL
  6. VITAMIN B12 [Concomitant]
     Active Substance: CYANOCOBALAMIN
  7. DOCUSATE CALCIUM [Concomitant]
     Active Substance: DOCUSATE CALCIUM

REACTIONS (3)
  - Urinary tract infection [None]
  - Urinary tract infection enterococcal [None]
  - Staphylococcal infection [None]

NARRATIVE: CASE EVENT DATE: 20220101
